FAERS Safety Report 26080933 (Version 1)
Quarter: 2025Q4

REPORT INFORMATION
  Report Type: Spontaneous
  Country: EU (occurrence: EU)
  Receive Date: 20251124
  Receipt Date: 20251124
  Transmission Date: 20260117
  Serious: Yes (Death, Life-Threatening, Hospitalization, Other)
  Sender: CELLTRION
  Company Number: EU-CELLTRION INC.-2025FR040689

PATIENT

DRUGS (7)
  1. BEVACIZUMAB [Suspect]
     Active Substance: BEVACIZUMAB
     Indication: Paraneoplastic hypoglycaemia
     Dosage: MAINTENANCE THERAPY
  2. BEVACIZUMAB [Suspect]
     Active Substance: BEVACIZUMAB
     Indication: Homologous recombination deficiency positive advanced ovarian cancer
  3. OLAPARIB [Suspect]
     Active Substance: OLAPARIB
     Indication: Paraneoplastic hypoglycaemia
     Dosage: MAINTENANCE THERAPY
  4. OLAPARIB [Suspect]
     Active Substance: OLAPARIB
     Indication: Homologous recombination deficiency positive advanced ovarian cancer
  5. CARBOPLATIN [Concomitant]
     Active Substance: CARBOPLATIN
     Indication: Homologous recombination deficiency positive advanced ovarian cancer
     Dosage: SIX CYCLES
  6. PACLITAXEL [Concomitant]
     Active Substance: PACLITAXEL
     Indication: Homologous recombination deficiency positive advanced ovarian cancer
     Dosage: SIX CYCLES
  7. CYCLOPHOSPHAMIDE [Concomitant]
     Active Substance: CYCLOPHOSPHAMIDE
     Route: 048

REACTIONS (7)
  - Death [Fatal]
  - Coma [Unknown]
  - Hypoglycaemia [Unknown]
  - Malignant peritoneal neoplasm [Unknown]
  - Ovarian cancer metastatic [Unknown]
  - Lymphadenopathy [Unknown]
  - Drug effective for unapproved indication [Unknown]
